FAERS Safety Report 6348057-5 (Version None)
Quarter: 2009Q3

REPORT INFORMATION
  Report Type: 
  Country: None (occurrence: None)
  Receive Date: 20090910
  Receipt Date: 20090908
  Transmission Date: 20100115
  Serious: Yes (Hospitalization, Other)
  Sender: FDA-Public Use
  Company Number: PHEH2007US04665

PATIENT
  Sex: Female

DRUGS (21)
  1. ZOMETA [Suspect]
     Indication: OSTEOPOROSIS
     Dosage: UNK
  2. AREDIA [Suspect]
     Indication: OSTEOPOROSIS
     Dosage: UNK
     Route: 042
  3. COREG [Concomitant]
     Dosage: 3.125 MG, BID
  4. PERIDEX [Concomitant]
  5. CYTOXAN [Concomitant]
     Indication: SYSTEMIC LUPUS ERYTHEMATOSUS
  6. IMMUNE GLOBULIN INTRAVENOUS (HUMAN) [Concomitant]
     Indication: SYSTEMIC LUPUS ERYTHEMATOSUS
     Route: 042
  7. PREDNISONE TAB [Concomitant]
  8. PLAQUENIL [Concomitant]
  9. PRILOSEC [Concomitant]
  10. AMBIEN [Concomitant]
  11. CALCIUM CITRATE [Concomitant]
  12. BELLERGAL [Concomitant]
  13. DONNATAL [Concomitant]
  14. ASACOL [Concomitant]
  15. NEXIUM [Concomitant]
  16. AGRYLIN [Concomitant]
     Dosage: UNK
  17. PERCOCET [Concomitant]
  18. FLEXERIL [Concomitant]
  19. AMANTADINE HCL [Concomitant]
  20. CORTISONE [Concomitant]
  21. ROCEPHIN [Concomitant]

REACTIONS (52)
  - ABDOMINAL PAIN [None]
  - ANAEMIA [None]
  - APTYALISM [None]
  - BONE DISORDER [None]
  - BONE EROSION [None]
  - BONE FRAGMENTATION [None]
  - BONE PAIN [None]
  - CARDIAC FAILURE CONGESTIVE [None]
  - CELLULITIS [None]
  - COLITIS ULCERATIVE [None]
  - DENTAL CARIES [None]
  - DIARRHOEA [None]
  - DYSPHAGIA [None]
  - ENDODONTIC PROCEDURE [None]
  - EXOSTOSIS [None]
  - FATIGUE [None]
  - GENERALISED OEDEMA [None]
  - GINGIVAL INFECTION [None]
  - GINGIVAL PAIN [None]
  - GINGIVAL SWELLING [None]
  - LUNG DISORDER [None]
  - MALOCCLUSION [None]
  - METASTATIC NEOPLASM [None]
  - MOUTH ULCERATION [None]
  - NASAL CONGESTION [None]
  - OLIGURIA [None]
  - OSTEITIS [None]
  - OSTEOARTHRITIS [None]
  - OSTEOLYSIS [None]
  - OSTEOMYELITIS [None]
  - OSTEONECROSIS [None]
  - OSTEOPENIA [None]
  - PAIN [None]
  - PERIODONTITIS [None]
  - PLATELET COUNT INCREASED [None]
  - PLEURAL EFFUSION [None]
  - POOR DENTAL CONDITION [None]
  - PYREXIA [None]
  - RENAL FAILURE [None]
  - SCAB [None]
  - SEPSIS [None]
  - SPINAL OSTEOARTHRITIS [None]
  - STOMATITIS [None]
  - SURGERY [None]
  - SWELLING [None]
  - SWELLING FACE [None]
  - TOOTH DISORDER [None]
  - TOOTH EXTRACTION [None]
  - TOOTH INJURY [None]
  - TYMPANIC MEMBRANE DISORDER [None]
  - UTERINE LEIOMYOMA [None]
  - VASCULITIS [None]
